FAERS Safety Report 5780356-8 (Version None)
Quarter: 2008Q2

REPORT INFORMATION
  Report Type: 
  Country: None (occurrence: None)
  Receive Date: 20080620
  Receipt Date: 20080612
  Transmission Date: 20081010
  Serious: Yes (Hospitalization)
  Sender: FDA-Public Use
  Company Number: B0525018A

PATIENT
  Age: 73 Year
  Sex: Female

DRUGS (1)
  1. ARIXTRA [Suspect]
     Indication: ANKLE OPERATION
     Dosage: 2.5MG PER DAY
     Route: 058
     Dates: start: 20080122, end: 20080131

REACTIONS (2)
  - ANAEMIA [None]
  - MUSCLE HAEMORRHAGE [None]
